FAERS Safety Report 17425860 (Version 1)
Quarter: 2020Q1

REPORT INFORMATION
  Report Type: Spontaneous
  Country: FR (occurrence: FR)
  Receive Date: 20200217
  Receipt Date: 20200217
  Transmission Date: 20200409
  Serious: Yes (Hospitalization)
  Sender: FDA-Public Use
  Company Number: FR-MYLANLABS-2020M1015813

PATIENT
  Age: 63 Year
  Sex: Female

DRUGS (4)
  1. SOTALOL. [Concomitant]
     Active Substance: SOTALOL
     Dosage: UNK
  2. OFLOXACIN. [Suspect]
     Active Substance: OFLOXACIN
     Indication: PYELONEPHRITIS
     Dosage: UNK
     Route: 065
     Dates: start: 20191112, end: 20191201
  3. PRAVASTATIN SODIUM. [Concomitant]
     Active Substance: PRAVASTATIN SODIUM
     Dosage: UNK
  4. PIPERACILLIN AND TAZOBACTAM [Suspect]
     Active Substance: PIPERACILLIN SODIUM\TAZOBACTAM SODIUM
     Indication: PYELONEPHRITIS
     Dosage: 2 DOSAGE FORM, QD
     Route: 041
     Dates: start: 20191202, end: 20191202

REACTIONS (2)
  - Rash [Recovered/Resolved]
  - Face oedema [Recovered/Resolved]

NARRATIVE: CASE EVENT DATE: 20191130
